FAERS Safety Report 6142865-1 (Version None)
Quarter: 2009Q2

REPORT INFORMATION
  Report Type: 
  Country: None (occurrence: None)
  Receive Date: 20090403
  Receipt Date: 20090331
  Transmission Date: 20091009
  Serious: No
  Sender: FDA-Public Use
  Company Number: US-B.I. PHARMACEUTICALS,INC./RIDGEFIELD-2009-BP-04081BP

PATIENT
  Sex: Female
  Weight: 99.79 kg

DRUGS (7)
  1. ZANTAC [Suspect]
     Indication: DYSPEPSIA
     Dosage: 150MG
     Route: 048
     Dates: start: 20090331, end: 20090331
  2. PROAIR HFA [Concomitant]
     Indication: EMPHYSEMA
     Route: 055
  3. GLUCOPHAGE [Concomitant]
     Indication: DIABETES MELLITUS
  4. JANUVIA [Concomitant]
     Indication: DIABETES MELLITUS
  5. ATIVAN [Concomitant]
     Indication: POST-TRAUMATIC STRESS DISORDER
  6. LEXAPRO [Concomitant]
     Indication: POST-TRAUMATIC STRESS DISORDER
  7. TRICOR [Concomitant]
     Indication: HYPERTENSION

REACTIONS (1)
  - VOMITING [None]
